FAERS Safety Report 5680867-X (Version None)
Quarter: 2008Q1

REPORT INFORMATION
  Report Type: 
  Country: None (occurrence: None)
  Receive Date: 20080325
  Receipt Date: 20080321
  Transmission Date: 20080703
  Serious: Yes (Hospitalization, Other)
  Sender: FDA-Public Use
  Company Number: 025346

PATIENT
  Age: 69 Year
  Sex: Male
  Weight: 86.2 kg

DRUGS (10)
  1. WARFARIN SODIUM [Suspect]
     Indication: ANTICOAGULANT THERAPY
     Dosage: ADJUSTED TO INR LEVELS, ORAL
     Route: 048
     Dates: end: 20070828
  2. PLAVIX [Concomitant]
  3. ATENOLOL [Concomitant]
  4. COREG [Concomitant]
  5. RAMIPRIL [Concomitant]
  6. PREVACID [Concomitant]
  7. ASPIRIN [Concomitant]
  8. PAROXETINE HCL [Concomitant]
  9. VYTORIN [Concomitant]
  10. LOVAZA [Concomitant]

REACTIONS (6)
  - BLOOD URINE [None]
  - CEREBRAL THROMBOSIS [None]
  - CHEST DISCOMFORT [None]
  - CHEST PAIN [None]
  - FALL [None]
  - INTERNATIONAL NORMALISED RATIO FLUCTUATION [None]
